FAERS Safety Report 9370317 (Version 1)
Quarter: 2013Q2

REPORT INFORMATION
  Report Type: Spontaneous
  Country: FR (occurrence: FR)
  Receive Date: 20130626
  Receipt Date: 20130626
  Transmission Date: 20140414
  Serious: Yes (Hospitalization, Other)
  Sender: FDA-Public Use
  Company Number: FR-BRISTOL-MYERS SQUIBB COMPANY-19026061

PATIENT
  Age: 87 Year
  Sex: Male

DRUGS (8)
  1. COUMADINE [Suspect]
     Indication: PROPHYLAXIS
     Route: 048
     Dates: end: 20121102
  2. PRADAXA [Suspect]
     Indication: PROPHYLAXIS
     Route: 048
     Dates: start: 20121024, end: 20121102
  3. DIGOXIN [Concomitant]
     Indication: VENTRICULAR ARRHYTHMIA
     Route: 048
     Dates: end: 20121102
  4. DIAMICRON [Concomitant]
     Indication: TYPE 2 DIABETES MELLITUS
     Route: 048
     Dates: end: 20121102
  5. METFORMIN [Concomitant]
     Indication: TYPE 2 DIABETES MELLITUS
     Route: 048
     Dates: end: 20121102
  6. CIBADREX [Concomitant]
     Indication: HYPERTENSION
     Route: 048
     Dates: end: 20121102
  7. AVODART [Concomitant]
     Indication: BENIGN PROSTATIC HYPERPLASIA
     Dosage: SOFT CAPSULE
     Route: 048
     Dates: end: 20121102
  8. FUROSEMIDE [Concomitant]
     Indication: HYPERTENSION
     Route: 048
     Dates: end: 20121102

REACTIONS (3)
  - Anaemia [Recovering/Resolving]
  - Renal failure [Recovering/Resolving]
  - Overdose [Unknown]
